FAERS Safety Report 13084183 (Version 2)
Quarter: 2017Q2

REPORT INFORMATION
  Report Type: Spontaneous
  Country: None (occurrence: US)
  Receive Date: 20170104
  Receipt Date: 20170403
  Transmission Date: 20170830
  Serious: No
  Sender: FDA-Public Use
  Company Number: US-GLAXOSMITHKLINE-US2016193246

PATIENT
  Age: 73 Year
  Sex: Male

DRUGS (2)
  1. VOLTAREN [Suspect]
     Active Substance: DICLOFENAC SODIUM
     Indication: EXOSTOSIS
  2. VOLTAREN [Suspect]
     Active Substance: DICLOFENAC SODIUM
     Indication: TENDONITIS
     Dosage: 6 G, QID

REACTIONS (7)
  - Diarrhoea [Recovered/Resolved]
  - Exostosis [Recovered/Resolved]
  - Abdominal discomfort [Recovered/Resolved]
  - Condition aggravated [Recovered/Resolved]
  - Incorrect dose administered [Unknown]
  - Off label use [Unknown]
  - Joint swelling [Unknown]

NARRATIVE: CASE EVENT DATE: 20161125
